FAERS Safety Report 14841949 (Version 1)
Quarter: 2018Q2

REPORT INFORMATION
  Report Type: Spontaneous
  Country: US (occurrence: US)
  Receive Date: 20180418
  Receipt Date: 20180418
  Transmission Date: 20180711
  Serious: Yes (Other)
  Sender: FDA-Public Use
  Company Number: None

PATIENT
  Sex: Female

DRUGS (16)
  1. LEVOTHYROXINE. [Concomitant]
     Active Substance: LEVOTHYROXINE
  2. TOPIRAMATE. [Concomitant]
     Active Substance: TOPIRAMATE
  3. HUMALOG [Concomitant]
     Active Substance: INSULIN LISPRO
  4. LANTUS [Concomitant]
     Active Substance: INSULIN GLARGINE
  5. CIMZIA [Suspect]
     Active Substance: CERTOLIZUMAB PEGOL
     Indication: RHEUMATOID ARTHRITIS
     Dosage: ?          OTHER FREQUENCY:EVERY 2 WEEKS;?
     Route: 058
     Dates: start: 20180405, end: 20180418
  6. DULOXETINE. [Concomitant]
     Active Substance: DULOXETINE
  7. EPINEPHRINE. [Concomitant]
     Active Substance: EPINEPHRINE
  8. METOPROLOL. [Concomitant]
     Active Substance: METOPROLOL
  9. AMOXICILLIN. [Concomitant]
     Active Substance: AMOXICILLIN
  10. DICLOFENAC [Concomitant]
     Active Substance: DICLOFENAC
  11. PREDNISONE. [Concomitant]
     Active Substance: PREDNISONE
  12. ROSUVASTATIN. [Concomitant]
     Active Substance: ROSUVASTATIN
  13. CYCLOBENZAPRINE. [Concomitant]
     Active Substance: CYCLOBENZAPRINE
  14. LOSARTIN [Concomitant]
     Active Substance: LOSARTAN
  15. INVOKANA [Concomitant]
     Active Substance: CANAGLIFLOZIN
  16. ISONIAZID. [Concomitant]
     Active Substance: ISONIAZID

REACTIONS (1)
  - Anaphylactic reaction [None]
